FAERS Safety Report 21511281 (Version 1)
Quarter: 2022Q4

REPORT INFORMATION
  Report Type: Spontaneous
  Country: GB (occurrence: GB)
  Receive Date: 20221027
  Receipt Date: 20221027
  Transmission Date: 20230112
  Serious: Yes (Other)
  Sender: FDA-Public Use
  Company Number: GB-SUN PHARMACEUTICAL INDUSTRIES LTD-2022RR-360684

PATIENT
  Weight: 2.04 kg

DRUGS (1)
  1. ASPIRIN [Suspect]
     Active Substance: ASPIRIN
     Indication: Prophylaxis
     Dosage: UNK
     Route: 065

REACTIONS (5)
  - Foetal exposure during pregnancy [Unknown]
  - Low birth weight baby [Unknown]
  - Feeding disorder [Unknown]
  - Weight decreased [Unknown]
  - Premature baby [Unknown]
